FAERS Safety Report 5563341-0 (Version None)
Quarter: 2007Q4

REPORT INFORMATION
  Report Type: 
  Country: None (occurrence: None)
  Receive Date: 20071212
  Receipt Date: 20071128
  Transmission Date: 20080405
  Serious: Yes (Other)
  Sender: FDA-Public Use
  Company Number: 164821USA

PATIENT
  Age: 48 Year
  Sex: Female

DRUGS (1)
  1. PACLITAXEL [Suspect]
     Indication: BREAST CANCER
     Dosage: 175 MG/M-2, INFUSED OVER 3 HOURS EVERY 3 WEEKS

REACTIONS (6)
  - DYSPHAGIA [None]
  - HYPERAESTHESIA [None]
  - MUSCULOSKELETAL PAIN [None]
  - NERVE INJURY [None]
  - PARAESTHESIA [None]
  - VOCAL CORD PARALYSIS [None]
